FAERS Safety Report 20507027 (Version 1)
Quarter: 2022Q1

REPORT INFORMATION
  Report Type: Spontaneous
  Country: US (occurrence: None)
  Receive Date: 20220222
  Receipt Date: 20220222
  Transmission Date: 20220423
  Serious: Yes (Other)
  Sender: FDA-Public Use
  Company Number: None

PATIENT
  Age: 67 Year
  Sex: Female
  Weight: 81 kg

DRUGS (7)
  1. CAPECITABINE [Suspect]
     Active Substance: CAPECITABINE
     Indication: Breast cancer female
     Dosage: OTHER FREQUENCY : BIDX7 DAYS, 7OFF;?
     Route: 048
     Dates: start: 20220201, end: 20220222
  2. PROMETHAZINE 25MG [Concomitant]
  3. MECLIZINE 25MG [Concomitant]
  4. ANTIVERT 50MG [Concomitant]
  5. DEXAMETHASONE [Concomitant]
     Active Substance: DEXAMETHASONE
  6. TYLENOL [Concomitant]
     Active Substance: ACETAMINOPHEN
  7. ERGOCALCIFEROL [Concomitant]
     Active Substance: ERGOCALCIFEROL

REACTIONS (1)
  - Metastases to central nervous system [None]

NARRATIVE: CASE EVENT DATE: 20220222
